FAERS Safety Report 19152443 (Version 4)
Quarter: 2021Q2

REPORT INFORMATION
  Report Type: Other
  Country: US (occurrence: US)
  Receive Date: 20210419
  Receipt Date: 20210623
  Transmission Date: 20210717
  Serious: Yes (Hospitalization, Other)
  Sender: FDA-Public Use
  Company Number: US-ROCHE-2806173

PATIENT
  Age: 62 Year
  Sex: Male
  Weight: 80.36 kg

DRUGS (6)
  1. OCREVUS [Suspect]
     Active Substance: OCRELIZUMAB
     Indication: PRIMARY PROGRESSIVE MULTIPLE SCLEROSIS
     Dosage: DATE OF INFUSION: 05/FEB/2020, 19/FEB/2020, 24/AUG/2020, DATE OF NEXT INFUSION: 03/MAR/2021
     Route: 042
     Dates: start: 2020
  2. AMPYRA [Concomitant]
     Active Substance: DALFAMPRIDINE
     Indication: TREMOR
  3. BACLOFEN. [Concomitant]
     Active Substance: BACLOFEN
     Indication: TREMOR
  4. BUPROPION. [Concomitant]
     Active Substance: BUPROPION
  5. LEVOTHYROXINE. [Concomitant]
     Active Substance: LEVOTHYROXINE
     Indication: HYPERTHYROIDISM
     Dosage: MICROMILLIGRAM
     Route: 048
  6. OCREVUS [Suspect]
     Active Substance: OCRELIZUMAB
     Dosage: ONGOING ? NO
     Route: 042
     Dates: start: 2019, end: 2019

REACTIONS (7)
  - Cognitive disorder [Recovered/Resolved]
  - Gait inability [Recovered/Resolved]
  - Multiple sclerosis [Not Recovered/Not Resolved]
  - Mental disorder [Unknown]
  - Cholecystectomy [Unknown]
  - Lethargy [Recovered/Resolved]
  - COVID-19 [Recovered/Resolved]

NARRATIVE: CASE EVENT DATE: 202012
